FAERS Safety Report 4663537-6 (Version None)
Quarter: 2005Q2

REPORT INFORMATION
  Report Type: 
  Country: None (occurrence: None)
  Receive Date: 20050517
  Receipt Date: 20050428
  Transmission Date: 20051028
  Serious: Yes (Hospitalization)
  Sender: FDA-Public Use
  Company Number: JP-GLAXOSMITHKLINE-B0380013A

PATIENT
  Age: 38 Year
  Sex: Male
  Weight: 73 kg

DRUGS (6)
  1. PAXIL [Suspect]
     Indication: DEPRESSION
     Route: 048
     Dates: start: 20050314, end: 20050423
  2. LIMAS [Concomitant]
     Route: 048
     Dates: start: 20050218, end: 20050423
  3. SEDIEL [Concomitant]
     Route: 048
     Dates: start: 20050219, end: 20050423
  4. RONFLEMAN [Concomitant]
     Dosage: .25MG PER DAY
     Route: 048
     Dates: start: 20050221, end: 20050423
  5. LORAZEPAM [Concomitant]
     Route: 048
     Dates: start: 20050310, end: 20050423
  6. SELBEX [Concomitant]
     Dosage: 150MG PER DAY
     Route: 048
     Dates: start: 20050414, end: 20050420

REACTIONS (9)
  - ABDOMINAL PAIN UPPER [None]
  - HEADACHE [None]
  - LIVER DISORDER [None]
  - MALAISE [None]
  - NAUSEA [None]
  - PRURITUS [None]
  - RASH [None]
  - RASH GENERALISED [None]
  - SOMNOLENCE [None]
